FAERS Safety Report 6364566-7 (Version None)
Quarter: 2009Q3

REPORT INFORMATION
  Report Type: 
  Country: None (occurrence: None)
  Receive Date: 20090919
  Receipt Date: 20090722
  Transmission Date: 20100115
  Serious: No
  Sender: FDA-Public Use
  Company Number: US-ABBOTT-09P-163-0587700-00

PATIENT
  Sex: Female
  Weight: 54.026 kg

DRUGS (10)
  1. HUMIRA [Suspect]
     Indication: ANKYLOSING SPONDYLITIS
     Dates: start: 20090222
  2. HUMIRA [Suspect]
     Dates: start: 20090426
  3. FLEXERIL [Concomitant]
     Indication: DRUG USE FOR UNKNOWN INDICATION
  4. OXYCONTIN [Concomitant]
     Indication: DRUG USE FOR UNKNOWN INDICATION
  5. NEURONTIN [Concomitant]
     Indication: DRUG USE FOR UNKNOWN INDICATION
  6. RANITIDINE [Concomitant]
     Indication: DRUG USE FOR UNKNOWN INDICATION
  7. PROVIGIL [Concomitant]
     Indication: DRUG USE FOR UNKNOWN INDICATION
  8. BIRTH CONTROL PILL [Concomitant]
     Indication: CONTRACEPTION
  9. ZANTAC [Concomitant]
     Indication: DRUG USE FOR UNKNOWN INDICATION
  10. OTC ALLERGY MEDICATION [Concomitant]
     Indication: DRUG USE FOR UNKNOWN INDICATION

REACTIONS (10)
  - ARTHRALGIA [None]
  - BONE PAIN [None]
  - DRUG DOSE OMISSION [None]
  - DRUG INEFFECTIVE [None]
  - INJECTION SITE PAIN [None]
  - INJECTION SITE VESICLES [None]
  - MUSCULOSKELETAL CHEST PAIN [None]
  - PYREXIA [None]
  - SCAB [None]
  - SCRATCH [None]
